FAERS Safety Report 5911741-9 (Version None)
Quarter: 2008Q4

REPORT INFORMATION
  Report Type: 
  Country: None (occurrence: None)
  Receive Date: 20081003
  Receipt Date: 20080922
  Transmission Date: 20090506
  Serious: Yes (Congenital Anomaly)
  Sender: FDA-Public Use
  Company Number: 100#08#2008-04771

PATIENT

DRUGS (3)
  1. CARBAMAZEPINE [Suspect]
     Indication: EPILEPSY
     Dosage: 650 MG
  2. PHENOBARBITAL TAB [Suspect]
     Indication: EPILEPSY
     Dosage: 130 MG
  3. FOLIC ACID [Concomitant]

REACTIONS (6)
  - CAESAREAN SECTION [None]
  - CONGENITAL CYSTIC KIDNEY DISEASE [None]
  - DYSMORPHISM [None]
  - MATERNAL DRUGS AFFECTING FOETUS [None]
  - RENAL HYPERTROPHY [None]
  - RENAL IMPAIRMENT [None]
